FAERS Safety Report 23942223 (Version 1)
Quarter: 2024Q2

REPORT INFORMATION
  Report Type: Spontaneous
  Country: US (occurrence: US)
  Receive Date: 20240605
  Receipt Date: 20240605
  Transmission Date: 20240716
  Serious: No
  Sender: FDA-Public Use
  Company Number: AP-2024-US-0203

PATIENT
  Sex: Female

DRUGS (1)
  1. CROMOLYN SODIUM [Suspect]
     Active Substance: CROMOLYN SODIUM
     Route: 048
     Dates: start: 20240122

REACTIONS (2)
  - Product taste abnormal [Recovered/Resolved]
  - Abdominal pain upper [Recovered/Resolved]
